FAERS Safety Report 24241880 (Version 1)
Quarter: 2024Q3

REPORT INFORMATION
  Report Type: Spontaneous
  Country: CA (occurrence: CA)
  Receive Date: 20240823
  Receipt Date: 20240823
  Transmission Date: 20241016
  Serious: Yes (Other)
  Sender: BAXTER
  Company Number: CA-BAXTER-2024BAX023356

PATIENT
  Age: 67 Year

DRUGS (2)
  1. SODIUM CHLORIDE [Suspect]
     Active Substance: SODIUM CHLORIDE
     Dosage: 30 ML AT AN UNSPECIFIED FREQUENCY (DOSAGE FORM : NOT SPECIFIED)
     Route: 065
  2. GADOBUTROL [Suspect]
     Active Substance: GADOBUTROL
     Dosage: AT AN UNSPECIFIED DOSE AND TOTAL FREQUENCY (THERAPY DURATION : 1 DAYS) (1.0) (DOSAGE FORM : SOLUTION
     Route: 065

REACTIONS (2)
  - Drug eruption [Not Recovered/Not Resolved]
  - Incorrect route of product administration [Not Recovered/Not Resolved]
